FAERS Safety Report 8874107 (Version 2)
Quarter: 2013Q1

REPORT INFORMATION
  Report Type: Spontaneous
  Country: US (occurrence: US)
  Receive Date: 20121023
  Receipt Date: 20130124
  Transmission Date: 20140127
  Serious: No
  Sender: FDA-Public Use
  Company Number: US-009507513-1210USA009743

PATIENT
  Sex: Male

DRUGS (6)
  1. ASMANEX TWISTHALER [Suspect]
     Indication: ASTHMA
     Dosage: 440 MICROGRAM, QD
     Dates: start: 20120419
  2. RESTASIS [Concomitant]
  3. VERAPAMIL [Concomitant]
  4. LISINOPRIL [Concomitant]
  5. TERAZOSIN HYDROCHLORIDE [Concomitant]
  6. NORVASC [Concomitant]

REACTIONS (2)
  - Cataract [Not Recovered/Not Resolved]
  - Visual impairment [Not Recovered/Not Resolved]
